FAERS Safety Report 7341512 (Version 4)
Quarter: 2013Q2

REPORT INFORMATION
  Report Type: Report from Study
  Country: AU (occurrence: AU)
  Receive Date: 20100401
  Receipt Date: 20130626
  Transmission Date: 20140414
  Serious: Yes (Life-Threatening, Hospitalization, Other)
  Sender: FDA-Public Use
  Company Number: PHHO2010AU04958

PATIENT
  Age: 70 Year
  Sex: Male
  Weight: 60.9 kg

DRUGS (21)
  1. AMN107 [Suspect]
     Indication: CHRONIC MYELOID LEUKAEMIA
     Dosage: 600 MG, UNK
     Route: 048
     Dates: start: 20100322
  2. AMN107 [Suspect]
     Dosage: 200 MG, BID
     Route: 048
  3. CANDESARTAN W/HYDROCHLOROTHIAZIDE [Concomitant]
     Indication: HYPERTENSION
  4. CANDESARTAN [Concomitant]
     Indication: HYPERTENSION
     Dosage: UNK
     Dates: end: 20100325
  5. PRAVASTATIN [Concomitant]
     Indication: HYPERCHOLESTEROLAEMIA
     Dosage: UNK
     Dates: end: 20100325
  6. METFORMIN [Concomitant]
     Indication: TYPE 2 DIABETES MELLITUS
  7. GLICLAZIDE [Concomitant]
     Indication: TYPE 2 DIABETES MELLITUS
  8. FELODIPINE [Concomitant]
     Indication: HYPERTENSION
  9. ROSIGLITAZONE [Concomitant]
     Indication: TYPE 2 DIABETES MELLITUS
  10. CLOPIDOGREL [Concomitant]
     Indication: MYOCARDIAL ISCHAEMIA
     Dosage: 75 MG, UNK
     Route: 048
  11. GLIBENCLAMIDE [Concomitant]
     Dosage: 5 MG, UNK
     Route: 048
  12. ISOSORBIDE MONONITRATE [Concomitant]
     Dosage: 60 MG, UNK
     Route: 048
  13. SITAGLIPTIN [Concomitant]
     Dosage: 25 MG, UNK
     Route: 048
  14. ROSUVASTATIN [Concomitant]
     Dosage: 10 MG, NOCTE
     Route: 048
  15. TELMISARTAN [Concomitant]
     Dosage: 80 MG, UNK
     Route: 048
  16. ESOMEPRAZOLE [Concomitant]
     Dosage: 40 MG, UNK
     Route: 048
  17. LERCANIDIPINE [Concomitant]
     Dosage: 10 MG, NOCTE
     Route: 048
  18. ASPIRIN [Concomitant]
     Dosage: 100 MG, UNK
     Route: 048
  19. CARVEDILOL [Concomitant]
     Dosage: 3.125 MG, BID
     Route: 048
  20. SLOW K [Concomitant]
     Dosage: 2 TAB TWICE DAILY
     Route: 048
  21. FUROSEMIDE [Concomitant]
     Dosage: 40 MG, BID
     Route: 048

REACTIONS (5)
  - Haemoglobin decreased [Recovered/Resolved]
  - Myocardial infarction [Not Recovered/Not Resolved]
  - Myocardial ischaemia [Recovered/Resolved]
  - Chest pain [Recovered/Resolved]
  - Vomiting [Recovered/Resolved]
